FAERS Safety Report 4451966-5 (Version None)
Quarter: 2004Q3

REPORT INFORMATION
  Report Type: 
  Country: None (occurrence: None)
  Receive Date: 20040917
  Receipt Date: 20040907
  Transmission Date: 20050211
  Serious: Yes (Hospitalization)
  Sender: FDA-Public Use
  Company Number: FR-JNJFOC-20040801093

PATIENT
  Age: 40 Year
  Sex: Female

DRUGS (10)
  1. DURAGESIC [Suspect]
     Route: 062
  2. DURAGESIC [Suspect]
     Indication: DRUG USE FOR UNKNOWN INDICATION
     Route: 062
  3. BACTRIM [Concomitant]
  4. BACTRIM [Concomitant]
  5. TRIFLUCAN [Concomitant]
  6. TRIFLUCAN [Concomitant]
  7. LEXOMIL [Concomitant]
  8. LEXOMIL [Concomitant]
  9. MEPRONIZINE [Concomitant]
  10. MEPRONIZINE [Concomitant]

REACTIONS (3)
  - CONVULSION [None]
  - DRUG WITHDRAWAL SYNDROME [None]
  - PANCREATITIS ACUTE [None]
